FAERS Safety Report 6576165-2 (Version None)
Quarter: 2010Q1

REPORT INFORMATION
  Report Type: 
  Country: None (occurrence: None)
  Receive Date: 20100209
  Receipt Date: 20100122
  Transmission Date: 20100710
  Serious: Yes (Hospitalization, Other)
  Sender: FDA-Public Use
  Company Number: PHHY2010BE05316

PATIENT
  Age: 55 Year
  Sex: Female

DRUGS (4)
  1. ZOLEDRONIC ACID [Suspect]
     Indication: HYPERCALCAEMIA OF MALIGNANCY
     Dosage: UNK
  2. SUTENT [Suspect]
     Dosage: 50 MG, DAILY
  3. SUTENT [Suspect]
     Dosage: 37.5 MG, PER DAY
  4. SUTENT [Suspect]
     Dosage: UNK

REACTIONS (20)
  - BONE PAIN [None]
  - COUGH [None]
  - DEBRIDEMENT [None]
  - DIARRHOEA [None]
  - HYPERTENSION [None]
  - HYPOTHYROIDISM [None]
  - LUNG DISORDER [None]
  - MALIGNANT NEOPLASM PROGRESSION [None]
  - METASTASES TO LUNG [None]
  - METASTATIC PAIN [None]
  - MUCOSAL INFLAMMATION [None]
  - OSTEONECROSIS [None]
  - PALMAR-PLANTAR ERYTHRODYSAESTHESIA SYNDROME [None]
  - PLEURAL EFFUSION [None]
  - PLEURITIC PAIN [None]
  - PULMONARY MASS [None]
  - RESPIRATORY DISORDER [None]
  - RESPIRATORY DISTRESS [None]
  - THERAPEUTIC RESPONSE DECREASED [None]
  - TUMOUR FLARE [None]
